FAERS Safety Report 18432084 (Version 1)
Quarter: 2020Q4

REPORT INFORMATION
  Report Type: Spontaneous
  Country: US (occurrence: US)
  Receive Date: 20201027
  Receipt Date: 20201027
  Transmission Date: 20210114
  Serious: Yes (Other)
  Sender: FDA-Public Use
  Company Number: None

PATIENT
  Age: 79 Year
  Sex: Male
  Weight: 100.8 kg

DRUGS (7)
  1. ASPIRIN LOW DOSE [Concomitant]
     Active Substance: ASPIRIN
  2. METOPROLOL SUCCINATE ER [Concomitant]
     Active Substance: METOPROLOL SUCCINATE
  3. WARFARIN [Concomitant]
     Active Substance: WARFARIN
  4. ABIRATERONE. [Suspect]
     Active Substance: ABIRATERONE ACETATE
     Indication: PROSTATE CANCER
     Route: 048
     Dates: start: 20201022
  5. ATORVASTATIN [Concomitant]
     Active Substance: ATORVASTATIN
  6. OMEGA-3 + VITAMIN D3 GUMMIES [Concomitant]
  7. PREDNISONE. [Concomitant]
     Active Substance: PREDNISONE

REACTIONS (3)
  - Hot flush [None]
  - Ear disorder [None]
  - Balance disorder [None]

NARRATIVE: CASE EVENT DATE: 20201027
